FAERS Safety Report 7129928-9 (Version None)
Quarter: 2010Q4

REPORT INFORMATION
  Report Type: 
  Country: None (occurrence: None)
  Receive Date: 20101130
  Receipt Date: 20101109
  Transmission Date: 20110411
  Serious: Yes (Other)
  Sender: FDA-Public Use
  Company Number: US-AMGEN-USASP2010004134

PATIENT

DRUGS (3)
  1. SENSIPAR [Suspect]
     Indication: HYPERPARATHYROIDISM SECONDARY
     Dosage: 30 MG, QD
     Route: 048
     Dates: start: 20080801
  2. SENSIPAR [Suspect]
     Dosage: 60 MG, QD
     Route: 048
     Dates: start: 20091001
  3. SENSIPAR [Suspect]
     Dosage: 90 MG, QD
     Route: 048
     Dates: start: 20100901

REACTIONS (2)
  - BLOOD CALCIUM DECREASED [None]
  - BLOOD PARATHYROID HORMONE INCREASED [None]
